FAERS Safety Report 11090499 (Version 2)
Quarter: 2015Q2

REPORT INFORMATION
  Report Type: Report from Study
  Country: US (occurrence: US)
  Receive Date: 20150505
  Receipt Date: 20150618
  Transmission Date: 20150821
  Serious: Yes (Hospitalization)
  Sender: FDA-Public Use
  Company Number: US-SA-2015SA057994

PATIENT
  Age: 56 Year
  Sex: Female

DRUGS (5)
  1. LANTUS [Suspect]
     Active Substance: INSULIN GLARGINE
     Indication: TYPE 2 DIABETES MELLITUS
     Dosage: DOSE:35 UNIT(S)
     Route: 065
     Dates: start: 20150101
  2. LANTUS [Suspect]
     Active Substance: INSULIN GLARGINE
     Indication: TYPE 2 DIABETES MELLITUS
     Dosage: DOSE:32 UNIT(S)
     Route: 065
     Dates: start: 201504
  3. HUMALOG [Concomitant]
     Active Substance: INSULIN LISPRO
     Dosage: DOSE: SLIDING SCALE WITH MEALS
     Dates: start: 20150417
  4. LANTUS [Suspect]
     Active Substance: INSULIN GLARGINE
     Indication: TYPE 2 DIABETES MELLITUS
     Dosage: DOSE:32 UNIT(S)
     Route: 065
     Dates: end: 201504
  5. LANTUS [Suspect]
     Active Substance: INSULIN GLARGINE
     Indication: TYPE 2 DIABETES MELLITUS
     Dosage: 33 TO 35 UNITS QD
     Route: 065
     Dates: start: 201504, end: 201504

REACTIONS (10)
  - Abdominal pain upper [Unknown]
  - Limb injury [Unknown]
  - Clostridium difficile colitis [Recovered/Resolved]
  - White blood cell count increased [Unknown]
  - Sepsis [Recovered/Resolved]
  - Abasia [Unknown]
  - Malaise [Unknown]
  - Tooth abscess [Unknown]
  - Blood glucose abnormal [Unknown]
  - Dizziness [Unknown]

NARRATIVE: CASE EVENT DATE: 20150417
